FAERS Safety Report 8133393-2 (Version None)
Quarter: 2012Q1

REPORT INFORMATION
  Report Type: 
  Country: None (occurrence: None)
  Receive Date: 20120213
  Receipt Date: 20120201
  Transmission Date: 20120608
  Serious: Yes (Hospitalization, Other)
  Sender: FDA-Public Use
  Company Number: US-MYLANLABS-2012S1003025

PATIENT
  Sex: Female

DRUGS (13)
  1. DIGOXIN [Suspect]
     Route: 048
     Dates: start: 20021207, end: 20080421
  2. CRESTOR [Concomitant]
  3. ASPIRIN [Concomitant]
  4. LEVOTHYROXINE SODIUM [Concomitant]
  5. COREG [Concomitant]
  6. LASIX [Concomitant]
  7. PROTONIX [Concomitant]
  8. FAMOTIDINE [Concomitant]
  9. VALSARTAN [Concomitant]
  10. POTASSIUM CHLORIDE [Concomitant]
  11. COREG [Concomitant]
  12. SPIRONOLACTONE [Concomitant]
  13. AMOXICILLIN [Concomitant]

REACTIONS (20)
  - CARDIAC FAILURE CONGESTIVE [None]
  - DYSPNOEA EXERTIONAL [None]
  - HEART RATE INCREASED [None]
  - PERICARDIAL EFFUSION [None]
  - RENAL FAILURE CHRONIC [None]
  - GALLOP RHYTHM PRESENT [None]
  - ILL-DEFINED DISORDER [None]
  - CORONARY ARTERY DISEASE [None]
  - CARDIAC VALVE DISEASE [None]
  - RALES [None]
  - HYPOKALAEMIA [None]
  - AORTIC VALVE INCOMPETENCE [None]
  - ORTHOPNOEA [None]
  - PLEURAL EFFUSION [None]
  - HYPERTENSION [None]
  - CARDIOMEGALY [None]
  - LEFT VENTRICULAR DYSFUNCTION [None]
  - HEPATOJUGULAR REFLUX [None]
  - OEDEMA PERIPHERAL [None]
  - SWELLING [None]
